FAERS Safety Report 14380386 (Version 1)
Quarter: 2018Q1

REPORT INFORMATION
  Report Type: Spontaneous
  Country: FR (occurrence: FR)
  Receive Date: 20180112
  Receipt Date: 20180112
  Transmission Date: 20180509
  Serious: Yes (Hospitalization)
  Sender: FDA-Public Use
  Company Number: FR-PFIZER INC-2018015619

PATIENT
  Age: 79 Year
  Sex: Male

DRUGS (16)
  1. RAMIPRIL. [Suspect]
     Active Substance: RAMIPRIL
     Indication: HYPERTENSION
     Dosage: 5 MG, DAILY
     Route: 048
     Dates: end: 20171122
  2. CUBICIN [Suspect]
     Active Substance: DAPTOMYCIN
     Indication: ENDOCARDITIS
     Dosage: 800 MG, ALTERNATE DAY (EVERY OTHER DAY)
     Route: 042
     Dates: start: 20171122
  3. DICLOFENAC [Concomitant]
     Active Substance: DICLOFENAC
     Dosage: UNK
  4. BISOPROLOL FUMARATE. [Concomitant]
     Active Substance: BISOPROLOL FUMARATE
     Dosage: UNK
  5. ALLOPURINOL. [Concomitant]
     Active Substance: ALLOPURINOL
     Dosage: UNK
  6. UROREC [Concomitant]
     Active Substance: SILODOSIN
     Dosage: UNK
  7. PREVISCAN (FLUINDIONE) [Concomitant]
     Active Substance: FLUINDIONE
     Dosage: UNK
  8. GENTAMICIN. [Suspect]
     Active Substance: GENTAMICIN
     Indication: ENDOCARDITIS
     Dosage: 300 MG, 1X/DAY
     Route: 041
     Dates: start: 20171108, end: 20171122
  9. VANCOMYCINE MYLAN [Suspect]
     Active Substance: VANCOMYCIN
     Indication: ENDOCARDITIS
     Dosage: 1.5 G, 1X/DAY (ONCE IN 24 HOURS)
     Route: 041
     Dates: start: 20171108, end: 20171122
  10. KARDEGIC [Concomitant]
     Active Substance: ASPIRIN DL-LYSINE
     Dosage: UNK
  11. RIFADINE [Suspect]
     Active Substance: RIFAMPIN
     Dosage: 900 MG, DAILY
     Route: 048
     Dates: start: 20171201
  12. LASILIX [Concomitant]
     Active Substance: FUROSEMIDE
     Dosage: UNK
  13. RIFADINE [Suspect]
     Active Substance: RIFAMPIN
     Indication: ENDOCARDITIS
     Dosage: 1200 MG, DAILY
     Route: 048
     Dates: start: 20171109, end: 20171130
  14. GLICLAZIDE [Concomitant]
     Active Substance: GLICLAZIDE
     Dosage: UNK
  15. ESOMEPRAZOLE [Concomitant]
     Active Substance: ESOMEPRAZOLE
     Dosage: UNK
  16. CORDARONE [Concomitant]
     Active Substance: AMIODARONE HYDROCHLORIDE
     Dosage: UNK

REACTIONS (4)
  - Hyperbilirubinaemia [Not Recovered/Not Resolved]
  - Jaundice [Not Recovered/Not Resolved]
  - Acute kidney injury [Recovering/Resolving]
  - Hypoacusis [Recovering/Resolving]

NARRATIVE: CASE EVENT DATE: 20171115
